FAERS Safety Report 16146357 (Version 2)
Quarter: 2019Q2

REPORT INFORMATION
  Report Type: Spontaneous
  Country: US (occurrence: US)
  Receive Date: 20190402
  Receipt Date: 20190514
  Transmission Date: 20190711
  Serious: No
  Sender: FDA-Public Use
  Company Number: US-PFIZER INC-2019135313

PATIENT
  Age: 74 Year
  Sex: Male
  Weight: 86.18 kg

DRUGS (9)
  1. ADVIL [Suspect]
     Active Substance: IBUPROFEN
     Indication: SINUS DISORDER
  2. ADVIL [Suspect]
     Active Substance: IBUPROFEN
     Indication: SINUS DISORDER
  3. ADVIL [Suspect]
     Active Substance: IBUPROFEN
     Indication: PAIN
  4. ADVIL [Suspect]
     Active Substance: IBUPROFEN
     Indication: PAIN
     Dosage: 10 MG, SINGLE (ONCE)
     Route: 048
     Dates: start: 20190302, end: 20190302
  5. ADVIL [Suspect]
     Active Substance: IBUPROFEN
     Indication: HYPERSENSITIVITY
  6. ADVIL [Suspect]
     Active Substance: IBUPROFEN
     Indication: PAIN
  7. ADVIL [Suspect]
     Active Substance: IBUPROFEN
     Indication: PAIN
     Dosage: 2 TABLETS AS NEEDED
     Route: 048
  8. FLOMAX [MORNIFLUMATE] [Concomitant]
     Active Substance: MORNIFLUMATE
     Indication: PROSTATIC DISORDER
     Dosage: 10 MG CAPSULE NIGHTLY
     Route: 048
     Dates: start: 2017
  9. ADVIL [Suspect]
     Active Substance: IBUPROFEN
     Indication: HYPERSENSITIVITY

REACTIONS (4)
  - Dyspepsia [Recovered/Resolved]
  - Drug hypersensitivity [Recovered/Resolved]
  - Wrong product administered [Recovered/Resolved]
  - Throat irritation [Recovered/Resolved]

NARRATIVE: CASE EVENT DATE: 20190302
